FAERS Safety Report 9186234 (Version 1)
Quarter: 2013Q1

REPORT INFORMATION
  Report Type: Spontaneous
  Country: US (occurrence: None)
  Receive Date: 20120628
  Receipt Date: 20120628
  Transmission Date: 20140127
  Serious: Yes (Hospitalization)
  Sender: FDA-Public Use
  Company Number: PHHY2011US63034

PATIENT
  Age: 71 Year
  Sex: Female

DRUGS (8)
  1. RECLAST [Suspect]
     Indication: OSTEOPOROSIS
     Dosage: 5 MG, UNK, INTRAVENOUS
     Route: 042
     Dates: start: 20110721
  2. ASPRIN ENTEROC COATED K.P. (ACETULSALICYLIC ACID) [Concomitant]
  3. VITAMIN D (ERGOCALCIFEROL) [Concomitant]
  4. CALCIUM CARBONATE (CALCIUM CARBONATE) [Concomitant]
  5. FISH OIL (FISH OIL) [Concomitant]
  6. ALPRAZOLAM (ALPRAZOLAM) [Concomitant]
  7. CITACAL + D (CALCIUM CITRATE, ERGOCALCIFEROL) [Concomitant]
  8. MULTIVITAMINS (ASCORBID ACID, ERGOCALCIFEROL, FOLIC ACID, NICOTINAMIDE, PANTHENOL, RETINOL, RIBOFLAVIN, THIAMINE HYDROCHLORIDE ) [Concomitant]

REACTIONS (14)
  - Pyrexia [None]
  - Nausea [None]
  - Vomiting [None]
  - Cough [None]
  - Dysgeusia [None]
  - Rash pruritic [None]
  - Influenza like illness [None]
  - Fatigue [None]
  - Arthralgia [None]
  - Back pain [None]
  - Myalgia [None]
  - Anaemia [None]
  - Pain [None]
  - Leukocytosis [None]
